FAERS Safety Report 7955188-2 (Version None)
Quarter: 2011Q4

REPORT INFORMATION
  Report Type: 
  Country: None (occurrence: None)
  Receive Date: 20111202
  Receipt Date: 20111129
  Transmission Date: 20120403
  Serious: Yes (Other)
  Sender: FDA-Public Use
  Company Number: PHEH2008US08722

PATIENT
  Sex: Female

DRUGS (21)
  1. MELOXICAM [Concomitant]
  2. OMEPRAZOLE [Concomitant]
  3. CHEMOTHERAPEUTICS [Concomitant]
  4. OXYCODONE HCL [Concomitant]
  5. AREDIA [Suspect]
     Indication: METASTASES TO BONE
  6. GEMZAR [Suspect]
  7. COUMADIN [Concomitant]
  8. PRILOSEC [Concomitant]
  9. MS CONTIN [Concomitant]
  10. PRINIVIL [Concomitant]
  11. PENICILLIN [Concomitant]
  12. MORPHINE [Concomitant]
  13. TOBRADEX [Concomitant]
  14. ZOMETA [Suspect]
     Indication: METASTASES TO BONE
     Dosage: UNK, MONTHLY
  15. XELODA [Concomitant]
  16. FEMARA [Concomitant]
  17. TIMOPTIC [Concomitant]
  18. AREDIA [Suspect]
     Indication: BREAST CANCER METASTATIC
     Dosage: UNK, MONTHLY
  19. TAXOL [Concomitant]
  20. PRAVASTATIN [Concomitant]
  21. MOBIC [Suspect]

REACTIONS (65)
  - NEOPLASM PROGRESSION [None]
  - BONE PAIN [None]
  - ANAEMIA [None]
  - NEOPLASM MALIGNANT [None]
  - FACET JOINT SYNDROME [None]
  - INTERVERTEBRAL DISC DEGENERATION [None]
  - DISABILITY [None]
  - ANHEDONIA [None]
  - OESOPHAGEAL PAIN [None]
  - FUNGAL INFECTION [None]
  - HYPOAESTHESIA [None]
  - BARRETT'S OESOPHAGUS [None]
  - VERTEBRAL FORAMINAL STENOSIS [None]
  - CERVICAL DYSPLASIA [None]
  - OSTEOARTHRITIS [None]
  - SPINAL OSTEOARTHRITIS [None]
  - HYDRONEPHROSIS [None]
  - VULVITIS [None]
  - CHEST DISCOMFORT [None]
  - OSTEOPOROSIS [None]
  - METASTASES TO SPINE [None]
  - SPONDYLOLISTHESIS [None]
  - LUMBAR SPINAL STENOSIS [None]
  - PAIN [None]
  - SYNOVIAL CYST [None]
  - HYPERCHOLESTEROLAEMIA [None]
  - CEREBRAL ATROPHY [None]
  - PALMAR-PLANTAR ERYTHRODYSAESTHESIA SYNDROME [None]
  - VERTIGO [None]
  - DUODENAL ULCER [None]
  - CATARACT [None]
  - ABSCESS NECK [None]
  - CERVICAL SPINAL STENOSIS [None]
  - ACQUIRED OESOPHAGEAL WEB [None]
  - CONSTIPATION [None]
  - DIPLOPIA [None]
  - IMPAIRED GASTRIC EMPTYING [None]
  - METASTASES TO LYMPH NODES [None]
  - INTERVERTEBRAL DISC PROTRUSION [None]
  - OSTEONECROSIS OF JAW [None]
  - WOUND INFECTION [None]
  - SKIN EXFOLIATION [None]
  - DEPRESSION [None]
  - METASTASES TO CENTRAL NERVOUS SYSTEM [None]
  - DYSPEPSIA [None]
  - RENAL FAILURE ACUTE [None]
  - ANXIETY [None]
  - CARPAL TUNNEL SYNDROME [None]
  - OSTEOPENIA [None]
  - BACK PAIN [None]
  - LYMPHADENOPATHY [None]
  - CYSTITIS [None]
  - INTRAOCULAR PRESSURE INCREASED [None]
  - STRABISMUS [None]
  - DEFORMITY [None]
  - RENAL FAILURE CHRONIC [None]
  - METASTASES TO LIVER [None]
  - HEPATIC MASS [None]
  - ABDOMINAL PAIN [None]
  - HIATUS HERNIA [None]
  - THROMBOCYTOPENIA [None]
  - OPHTHALMOPLEGIA [None]
  - IMPAIRED HEALING [None]
  - METASTASES TO EYE [None]
  - TENOSYNOVITIS STENOSANS [None]
